FAERS Safety Report 13044714 (Version 1)
Quarter: 2016Q4

REPORT INFORMATION
  Report Type: Spontaneous
  Country: US (occurrence: US)
  Receive Date: 20161220
  Receipt Date: 20161220
  Transmission Date: 20170207
  Serious: No
  Sender: FDA-Public Use
  Company Number: US-ROCHE-1021534

PATIENT
  Age: 58 Year
  Sex: Male
  Weight: 89.44 kg

DRUGS (4)
  1. ZELBORAF [Suspect]
     Active Substance: VEMURAFENIB
     Indication: METASTATIC MALIGNANT MELANOMA
     Route: 048
     Dates: start: 201111, end: 201112
  2. ZELBORAF [Suspect]
     Active Substance: VEMURAFENIB
     Route: 048
  3. ZELBORAF [Suspect]
     Active Substance: VEMURAFENIB
     Route: 048
     Dates: start: 201201
  4. ZELBORAF [Suspect]
     Active Substance: VEMURAFENIB
     Route: 048
     Dates: start: 201112

REACTIONS (11)
  - Pruritus [Not Recovered/Not Resolved]
  - Alopecia [Unknown]
  - Sunburn [Unknown]
  - Arthralgia [Not Recovered/Not Resolved]
  - Hair colour changes [Unknown]
  - Rash [Recovered/Resolved]
  - Headache [Not Recovered/Not Resolved]
  - Hair texture abnormal [Unknown]
  - Ocular hyperaemia [Not Recovered/Not Resolved]
  - Alopecia [Not Recovered/Not Resolved]
  - Fatigue [Unknown]

NARRATIVE: CASE EVENT DATE: 201111
